FAERS Safety Report 11145693 (Version 1)
Quarter: 2015Q2

REPORT INFORMATION
  Report Type: Spontaneous
  Country: FR (occurrence: FR)
  Receive Date: 20150528
  Receipt Date: 20150528
  Transmission Date: 20150821
  Serious: Yes (Life-Threatening, Hospitalization, Other)
  Sender: FDA-Public Use
  Company Number: FR-PFIZER INC-2015179833

PATIENT
  Age: 90 Year
  Sex: Female

DRUGS (4)
  1. CEFEPIME [Suspect]
     Active Substance: CEFEPIME\CEFEPIME HYDROCHLORIDE
     Dosage: 4 G, 1X/DAY
     Route: 042
     Dates: start: 20150306, end: 20150324
  2. KARDEGIC [Concomitant]
     Active Substance: ASPIRIN LYSINE
     Dosage: 75 MG, DAILY
     Dates: end: 20150326
  3. BISOCE [Concomitant]
     Active Substance: BISOPROLOL
     Dosage: 2.5 MG, UNK
  4. EUPANTOL [Suspect]
     Active Substance: PANTOPRAZOLE SODIUM
     Dosage: 20 MG, 1X/DAY
     Route: 048
     Dates: start: 20150225, end: 20150323

REACTIONS (1)
  - Acute kidney injury [Not Recovered/Not Resolved]

NARRATIVE: CASE EVENT DATE: 20150318
